FAERS Safety Report 6330281-9 (Version None)
Quarter: 2009Q3

REPORT INFORMATION
  Report Type: 
  Country: None (occurrence: None)
  Receive Date: 20090826
  Receipt Date: 20090826
  Transmission Date: 20100115
  Serious: Yes (Other)
  Sender: FDA-Public Use
  Company Number: None

PATIENT
  Sex: Female
  Weight: 88.4514 kg

DRUGS (1)
  1. KAPIDEX [Suspect]
     Indication: GASTROOESOPHAGEAL REFLUX DISEASE
     Dosage: 60 MG 1X DAILY PO
     Route: 048
     Dates: start: 20090811, end: 20090821

REACTIONS (8)
  - ABSCESS [None]
  - MUSCULOSKELETAL STIFFNESS [None]
  - OROPHARYNGEAL PAIN [None]
  - PAIN IN JAW [None]
  - POSTNASAL DRIP [None]
  - RASH [None]
  - SKIN INFECTION [None]
  - URTICARIA [None]
